FAERS Safety Report 23231421 (Version 1)
Quarter: 2023Q4

REPORT INFORMATION
  Report Type: Spontaneous
  Country: US (occurrence: US)
  Receive Date: 20231127
  Receipt Date: 20231127
  Transmission Date: 20240110
  Serious: No
  Sender: FDA-Public Use
  Company Number: US-AVADEL CNS PHARMACEUTICALS, LLC-2023AVA00299

PATIENT
  Age: 48 Year
  Sex: Female

DRUGS (13)
  1. LUMRYZ [Suspect]
     Active Substance: SODIUM OXYBATE
     Indication: Narcolepsy
     Dosage: 7.5 G, 1X/DAY NIGHTLY
     Dates: start: 202310
  2. UNSPECIFIED INGREDIENT [Suspect]
     Active Substance: UNSPECIFIED INGREDIENT
     Indication: Hypersensitivity
  3. MODAFINIL [Concomitant]
     Active Substance: MODAFINIL
  4. ROPINIROLE [Concomitant]
     Active Substance: ROPINIROLE
  5. NAPROXEN [Concomitant]
     Active Substance: NAPROXEN
  6. PREVACID [Concomitant]
     Active Substance: LANSOPRAZOLE
  7. CEVIMELINE [Concomitant]
     Active Substance: CEVIMELINE
  8. HORMONE CREAM [Concomitant]
  9. ZYRTEC [Concomitant]
     Active Substance: CETIRIZINE HYDROCHLORIDE
  10. HAIR AND NAIL SUPPLEMENT [Concomitant]
  11. BOTOX [Concomitant]
     Active Substance: ONABOTULINUMTOXINA
     Dosage: UNK, EVERY 3 MONTHS
  12. WELLBUTRIN [Concomitant]
     Active Substance: BUPROPION HYDROCHLORIDE
  13. LEXAPRO [Concomitant]
     Active Substance: ESCITALOPRAM OXALATE

REACTIONS (3)
  - Insomnia [Unknown]
  - Dysphonia [Not Recovered/Not Resolved]
  - Product preparation issue [Recovered/Resolved]

NARRATIVE: CASE EVENT DATE: 20231019
